FAERS Safety Report 21664642 (Version 1)
Quarter: 2022Q4

REPORT INFORMATION
  Report Type: Spontaneous
  Country: US (occurrence: None)
  Receive Date: 20221129
  Receipt Date: 20221129
  Transmission Date: 20230113
  Serious: No
  Sender: FDA-Public Use
  Company Number: None

PATIENT
  Age: 58 Year
  Sex: Female

DRUGS (1)
  1. ENBREL [Suspect]
     Active Substance: ETANERCEPT
     Route: 058
     Dates: start: 201904

REACTIONS (4)
  - Salpingectomy [None]
  - Cystocele repair [None]
  - Rectocele repair [None]
  - Pelvic organ prolapse [None]

NARRATIVE: CASE EVENT DATE: 20221129
